FAERS Safety Report 20710962 (Version 1)
Quarter: 2022Q2

REPORT INFORMATION
  Report Type: Spontaneous
  Country: US (occurrence: None)
  Receive Date: 20220414
  Receipt Date: 20220414
  Transmission Date: 20220721
  Serious: Yes (Death)
  Sender: FDA-Public Use
  Company Number: None

PATIENT
  Sex: Male

DRUGS (8)
  1. SILDENAFIL [Suspect]
     Active Substance: SILDENAFIL
     Indication: Pulmonary arterial hypertension
     Dosage: ?TAKE 1 TABLET BY MOUTH THREE TIMES DAILY
     Route: 048
     Dates: start: 20220402
  2. ASPIRIN LOW TAB [Concomitant]
  3. CLARITIN TAB [Concomitant]
  4. FLONASE ALGY SPR [Concomitant]
  5. PEPCID AC TAB [Concomitant]
  6. SILDENAFIL [Concomitant]
     Active Substance: SILDENAFIL
  7. TYVASO SOL [Concomitant]
  8. VITAMIN D3 [Concomitant]
     Active Substance: CHOLECALCIFEROL

REACTIONS (1)
  - Death [None]
